FAERS Safety Report 16632101 (Version 1)
Quarter: 2019Q3

REPORT INFORMATION
  Report Type: Spontaneous
  Country: US (occurrence: US)
  Receive Date: 20190725
  Receipt Date: 20190725
  Transmission Date: 20191004
  Serious: No
  Sender: FDA-Public Use
  Company Number: US-ABBVIE-19S-163-2680310-00

PATIENT
  Sex: Female
  Weight: 60.38 kg

DRUGS (10)
  1. SYNTHROID [Suspect]
     Active Substance: LEVOTHYROXINE SODIUM
     Indication: MALAISE
     Route: 048
  2. SYNTHROID [Suspect]
     Active Substance: LEVOTHYROXINE SODIUM
     Indication: WEIGHT INCREASED
     Route: 048
     Dates: end: 2017
  3. SYNTHROID [Suspect]
     Active Substance: LEVOTHYROXINE SODIUM
     Indication: FATIGUE
  4. HYDROCODONE [Concomitant]
     Active Substance: HYDROCODONE
     Indication: NECK PAIN
  5. LYRICA [Suspect]
     Active Substance: PREGABALIN
     Indication: FIBROMYALGIA
     Route: 048
     Dates: start: 2012
  6. MORPHINE [Concomitant]
     Active Substance: MORPHINE
     Indication: PRODUCT USED FOR UNKNOWN INDICATION
     Route: 065
  7. BACLOFEN. [Concomitant]
     Active Substance: BACLOFEN
     Indication: MUSCLE RELAXANT THERAPY
     Route: 065
  8. HYDROCODONE [Concomitant]
     Active Substance: HYDROCODONE
     Indication: BACK PAIN
     Route: 065
  9. SYNTHROID [Suspect]
     Active Substance: LEVOTHYROXINE SODIUM
     Indication: FATIGUE
     Route: 048
  10. LYRICA [Suspect]
     Active Substance: PREGABALIN
     Indication: NEURALGIA
     Route: 048

REACTIONS (25)
  - Pneumonia [Unknown]
  - Asthma [Unknown]
  - Sleep apnoea syndrome [Unknown]
  - Hyperthyroidism [Unknown]
  - Weight decreased [Unknown]
  - Hypoaesthesia [Unknown]
  - Vomiting [Unknown]
  - Paraesthesia [Unknown]
  - Swelling [Unknown]
  - Hypophagia [Unknown]
  - Swelling [Not Recovered/Not Resolved]
  - Chronic obstructive pulmonary disease [Unknown]
  - Gait disturbance [Unknown]
  - Fibromyalgia [Unknown]
  - Gastroenteritis [Unknown]
  - Psychomotor hyperactivity [Unknown]
  - Product prescribing error [Unknown]
  - Osteoarthritis [Unknown]
  - Neuralgia [Unknown]
  - Hirsutism [Unknown]
  - Gastric disorder [Unknown]
  - Alopecia [Unknown]
  - Diverticulum [Unknown]
  - Skin burning sensation [Unknown]
  - Skin abrasion [Unknown]

NARRATIVE: CASE EVENT DATE: 2004
